FAERS Safety Report 4268730-2 (Version None)
Quarter: 2004Q1

REPORT INFORMATION
  Report Type: 
  Country: None (occurrence: None)
  Receive Date: 20040112
  Receipt Date: 20040112
  Transmission Date: 20041129
  Serious: Yes (Life-Threatening, Hospitalization)
  Sender: FDA-Public Use
  Company Number: None

PATIENT
  Age: 55 Year
  Sex: Male

DRUGS (2)
  1. ARAVA [Suspect]
     Indication: RHEUMATOID ARTHRITIS
     Dosage: 10 MG PO QD
     Route: 048
     Dates: start: 20010101, end: 20031101
  2. METHOTREXATE [Concomitant]

REACTIONS (1)
  - HISTOPLASMOSIS DISSEMINATED [None]
